FAERS Safety Report 11680925 (Version 3)
Quarter: 2015Q4

REPORT INFORMATION
  Report Type: Spontaneous
  Country: US (occurrence: US)
  Receive Date: 20151027
  Receipt Date: 20151110
  Transmission Date: 20160304
  Serious: No
  Sender: FDA-Public Use
  Company Number: US-ELI_LILLY_AND_COMPANY-US201011005693

PATIENT
  Age: 59 Year
  Sex: Female

DRUGS (6)
  1. FORTEO [Suspect]
     Active Substance: TERIPARATIDE
     Indication: OSTEOPOROSIS
     Dosage: 20 UG, DAILY (1/D)
     Route: 065
     Dates: start: 20100826
  2. FORTEO [Suspect]
     Active Substance: TERIPARATIDE
     Dosage: 20 UG, QD
  3. FISH OIL [Concomitant]
     Active Substance: FISH OIL
  4. FORTEO [Suspect]
     Active Substance: TERIPARATIDE
     Dosage: 20 UG, QD
     Route: 065
  5. VITAMIN E [Concomitant]
     Active Substance: .ALPHA.-TOCOPHEROL
  6. BABY ASPIRIN [Concomitant]
     Active Substance: ASPIRIN

REACTIONS (8)
  - Bone density decreased [Unknown]
  - Injection site pain [Unknown]
  - Sinusitis [Recovered/Resolved]
  - Injection site bruising [Unknown]
  - Nasopharyngitis [Unknown]
  - Cataract [Unknown]
  - Weight decreased [Unknown]
  - Trigger finger [Unknown]

NARRATIVE: CASE EVENT DATE: 201102
